FAERS Safety Report 16494982 (Version 2)
Quarter: 2019Q3

REPORT INFORMATION
  Report Type: Report from Study
  Country: US (occurrence: US)
  Receive Date: 20190628
  Receipt Date: 20190710
  Transmission Date: 20191004
  Serious: Yes (Other)
  Sender: FDA-Public Use
  Company Number: US-ALEXION PHARMACEUTICALS INC.-A201909505

PATIENT
  Sex: Female

DRUGS (1)
  1. SOLIRIS [Suspect]
     Active Substance: ECULIZUMAB
     Indication: ATYPICAL HAEMOLYTIC URAEMIC SYNDROME
     Dosage: UNK
     Route: 065

REACTIONS (8)
  - Cardiac valve vegetation [Unknown]
  - Dizziness [Unknown]
  - Skin discolouration [Unknown]
  - Fatigue [Unknown]
  - Somnolence [Unknown]
  - Memory impairment [Unknown]
  - Dysuria [Unknown]
  - Back pain [Unknown]
